FAERS Safety Report 8026121-2 (Version None)
Quarter: 2012Q1

REPORT INFORMATION
  Report Type: 
  Country: None (occurrence: None)
  Receive Date: 20120105
  Receipt Date: 20110707
  Transmission Date: 20120608
  Serious: No
  Sender: FDA-Public Use
  Company Number: US-ABBOTT-11P-163-0837731-00

PATIENT
  Sex: Male
  Weight: 83.082 kg

DRUGS (2)
  1. SYNTHROID [Suspect]
     Indication: BLOOD THYROID STIMULATING HORMONE INCREASED
     Route: 060
     Dates: start: 20101201
  2. SYNTHROID [Suspect]
     Indication: ANTI-THYROID ANTIBODY POSITIVE

REACTIONS (3)
  - INCORRECT ROUTE OF DRUG ADMINISTRATION [None]
  - ANTI-THYROID ANTIBODY POSITIVE [None]
  - BLOOD THYROID STIMULATING HORMONE INCREASED [None]
